FAERS Safety Report 12808896 (Version 1)
Quarter: 2016Q4

REPORT INFORMATION
  Report Type: Spontaneous
  Country: US (occurrence: US)
  Receive Date: 20161004
  Receipt Date: 20161004
  Transmission Date: 20170207
  Serious: Yes (Other)
  Sender: FDA-Public Use
  Company Number: US-LUNDBECK-DKLU2020146

PATIENT
  Age: 8 Year
  Sex: Male

DRUGS (3)
  1. ONFI [Suspect]
     Active Substance: CLOBAZAM
     Indication: PARTIAL SEIZURES
     Route: 048
  2. TRILEPTAL [Concomitant]
     Active Substance: OXCARBAZEPINE
     Indication: PRODUCT USED FOR UNKNOWN INDICATION
     Route: 065
  3. ONFI [Suspect]
     Active Substance: CLOBAZAM
     Route: 048

REACTIONS (6)
  - Disturbance in attention [Unknown]
  - Seizure cluster [Recovered/Resolved]
  - Memory impairment [Unknown]
  - Off label use [Unknown]
  - Abnormal behaviour [Unknown]
  - Dysarthria [Unknown]

NARRATIVE: CASE EVENT DATE: 20160502
